FAERS Safety Report 9865594 (Version 1)
Quarter: 2014Q1

REPORT INFORMATION
  Report Type: Spontaneous
  Country: US (occurrence: US)
  Receive Date: 20140203
  Receipt Date: 20140203
  Transmission Date: 20141002
  Serious: No
  Sender: FDA-Public Use
  Company Number: US-ALLERGAN-1306457US

PATIENT
  Age: 73 Year
  Sex: Female

DRUGS (5)
  1. RESTASIS [Suspect]
     Indication: DRY EYE
     Dosage: 2 GTT, BID
     Route: 047
  2. LISINOPRIL [Concomitant]
     Indication: HYPERTENSION
     Dosage: UNK UNK, QD
     Route: 048
  3. METAPROLOL [Concomitant]
     Indication: HYPERTENSION
     Dosage: 50 MG, QD
     Route: 048
  4. SYSTANE [Concomitant]
     Indication: DRY EYE
     Dosage: UNK UNK, PRN
     Route: 047
  5. ZYRTEC                             /00884302/ [Concomitant]
     Indication: UPPER-AIRWAY COUGH SYNDROME
     Dosage: UNK UNK, QHS
     Route: 048
     Dates: start: 20130410, end: 20130412

REACTIONS (3)
  - Eye irritation [Unknown]
  - Eye irritation [Unknown]
  - Dry eye [Unknown]
